FAERS Safety Report 9850287 (Version 1)
Quarter: 2013Q4

REPORT INFORMATION
  Report Type: Spontaneous
  Country: US (occurrence: None)
  Receive Date: 20131127
  Receipt Date: 20131127
  Transmission Date: 20140711
  Serious: Yes (Other)
  Sender: FDA-Public Use
  Company Number: 224297LEO

PATIENT
  Age: 68 Year
  Sex: Female

DRUGS (1)
  1. PICATO [Suspect]
     Indication: ACTINIC KERATOSIS
     Dosage: FOR 3 DAYS
     Route: 061
     Dates: start: 20131013

REACTIONS (4)
  - Application site erythema [None]
  - Application site warmth [None]
  - Application site swelling [None]
  - Drug administration error [None]
